FAERS Safety Report 7622855-X (Version None)
Quarter: 2011Q3

REPORT INFORMATION
  Report Type: 
  Country: None (occurrence: None)
  Receive Date: 20110712
  Receipt Date: 20110627
  Transmission Date: 20111222
  Serious: Yes (Death, Hospitalization)
  Sender: FDA-Public Use
  Company Number: KV200900712

PATIENT
  Age: 71 Year
  Sex: Male
  Weight: 73 kg

DRUGS (44)
  1. TEVETEN [Concomitant]
  2. CARAFATE [Concomitant]
  3. PROPOXYPHENE NAPSYLATE W/ACETAMINOPHENE (DEXTROPROPOXYPHENE NAPSILATE, [Concomitant]
  4. ACYCLOVIR [Concomitant]
  5. ALTACE [Concomitant]
  6. HYDROCODONE BITARTRATE AND ACETAMINOPHEN (HYDROCODONE BITARTRATE, PARA [Concomitant]
  7. OXYCODONE HCL [Concomitant]
  8. MORPHINE SULFATE [Suspect]
     Indication: BREAKTHROUGH PAIN
     Dosage: 7.5 MG, Q6H PO, ORAL
     Route: 048
  9. ALBUTEROL SULFATE AUTOHALER [Concomitant]
  10. ENULOSE [Concomitant]
  11. TRIAZOLAM [Concomitant]
  12. DEXAMETHASONE [Concomitant]
  13. TUSSIONEX [Concomitant]
  14. DOXYCYCLINE HYCLATE (DOXYCYCLINE HYCLATE) [Concomitant]
  15. PROCHLORPERAZINE MALEATE [Concomitant]
  16. MYLANTA [Concomitant]
  17. TYLENOL-500 [Concomitant]
  18. BENZONATATE [Concomitant]
  19. VENLAFAXINE [Concomitant]
  20. ALLEGRA D 24 HOUR [Concomitant]
  21. PROSOM (ESTAZOLAM) [Concomitant]
  22. METFORMIN HCL [Concomitant]
  23. AZITHROMYCIN [Concomitant]
  24. ACTOS [Concomitant]
  25. FLUCONAZOLE [Concomitant]
  26. ORPHENADRINE CITRATE [Concomitant]
  27. COLACE (DOCULSATE SODIUM) [Concomitant]
  28. HYDROMORPHONE (HYDROMORPHONE) [Concomitant]
  29. AMOXCLAV [Concomitant]
  30. OXYCODONE HYDROCHLORIDE W/PARACETAMOL (OXYCODONE HYDROCHLORIDE PARACET [Concomitant]
  31. BIAXIN [Concomitant]
  32. NEXIUM [Concomitant]
  33. CHERATUSSIN AC (CODEINE, GUAIFENESIN) [Concomitant]
  34. SYNTHROID [Concomitant]
  35. AVELOX [Concomitant]
  36. LIDOCAINE VISCOUS (LIDOCAINE HYDROCHLORIDE) [Concomitant]
  37. MORPHINE SULFATE INJ [Concomitant]
  38. CELEBREX [Concomitant]
  39. LEVAQUIN [Concomitant]
  40. GELCLAIR [Concomitant]
  41. CYANOCOBALAMIN [Concomitant]
  42. COMBIVENT [Concomitant]
  43. CLOTRIMAZOLE W/BETAMETHASONE DIPROPIONAT (BETAMETHASONE DIPROPIONATE, [Concomitant]
  44. WYGESIC (DEXTROPROPOXYPHENE HYDROCHLORIDE, PARACETAMOL) [Concomitant]

REACTIONS (10)
  - PAIN [None]
  - CACHEXIA [None]
  - DYSPNOEA [None]
  - PALLOR [None]
  - TACHYPNOEA [None]
  - RESPIRATORY DISTRESS [None]
  - MUSCULOSKELETAL PAIN [None]
  - TACHYCARDIA [None]
  - DEHYDRATION [None]
  - LUNG ADENOCARCINOMA STAGE III [None]
